FAERS Safety Report 7319919-7 (Version None)
Quarter: 2011Q1

REPORT INFORMATION
  Report Type: 
  Country: None (occurrence: None)
  Receive Date: 20110228
  Receipt Date: 20101207
  Transmission Date: 20110831
  Serious: No
  Sender: FDA-Public Use
  Company Number: A0898388A

PATIENT
  Age: 37 Year
  Sex: Female

DRUGS (2)
  1. LAMICTAL [Suspect]
     Indication: BIPOLAR DISORDER
     Dosage: 100MG TWICE PER DAY
     Route: 048
  2. INHALER [Concomitant]
     Indication: ASTHMA

REACTIONS (5)
  - ERYTHEMA [None]
  - URTICARIA [None]
  - RASH [None]
  - BURNING SENSATION [None]
  - FLUSHING [None]
